FAERS Safety Report 17054074 (Version 1)
Quarter: 2019Q4

REPORT INFORMATION
  Report Type: Spontaneous
  Country: US (occurrence: US)
  Receive Date: 20191022
  Receipt Date: 20191022
  Transmission Date: 20200122
  Serious: Yes (Disabling)
  Sender: FDA-Public Use
  Company Number: None

PATIENT
  Age: 53 Year
  Sex: Female
  Weight: 83.91 kg

DRUGS (7)
  1. VITAMIN B12 [Concomitant]
     Active Substance: CYANOCOBALAMIN
  2. ITHYROXINE [Concomitant]
  3. VIT D [Concomitant]
     Active Substance: VITAMIN D NOS
  4. VENTOLIN [Concomitant]
     Active Substance: ALBUTEROL SULFATE
  5. WIXELA INHUB [Suspect]
     Active Substance: FLUTICASONE PROPIONATE\SALMETEROL XINAFOATE
     Indication: ASTHMA
     Dosage: ?          QUANTITY:250/50 ;?
     Route: 048
     Dates: start: 20190707, end: 20191015
  6. LOSARTAN. [Concomitant]
     Active Substance: LOSARTAN
  7. VIE E [Concomitant]

REACTIONS (7)
  - Treatment failure [None]
  - Dyspnoea [None]
  - Chest discomfort [None]
  - Chest pain [None]
  - Dysphonia [None]
  - Product substitution issue [None]
  - Wheezing [None]

NARRATIVE: CASE EVENT DATE: 20190820
